FAERS Safety Report 4864306-4 (Version None)
Quarter: 2005Q4

REPORT INFORMATION
  Report Type: 
  Country: None (occurrence: None)
  Receive Date: 20051222
  Receipt Date: 20041123
  Transmission Date: 20060501
  Serious: Yes (Hospitalization, Disabling, Other)
  Sender: FDA-Public Use
  Company Number: US-MERCK-0411USA03936

PATIENT
  Age: 59 Year
  Sex: Female

DRUGS (4)
  1. VIOXX [Suspect]
     Indication: FIBROMYALGIA
     Route: 048
     Dates: start: 19990501, end: 20020101
  2. VIOXX [Suspect]
     Route: 048
     Dates: start: 20020101, end: 20030301
  3. VIOXX [Suspect]
     Route: 048
     Dates: start: 20040101, end: 20041001
  4. VIOXX [Suspect]
     Route: 048
     Dates: start: 20030301, end: 20040101

REACTIONS (26)
  - BLOOD CHOLESTEROL INCREASED [None]
  - BRONCHITIS ACUTE [None]
  - CALCULUS URETERIC [None]
  - CHRONIC OBSTRUCTIVE PULMONARY DISEASE [None]
  - CONNECTIVE TISSUE DISORDER [None]
  - DEEP VEIN THROMBOSIS [None]
  - DYSLIPIDAEMIA [None]
  - FIBROMYALGIA [None]
  - GASTROOESOPHAGEAL REFLUX DISEASE [None]
  - GLUCOSE TOLERANCE IMPAIRED [None]
  - HEPATIC CYST [None]
  - HYPERTENSION [None]
  - INSOMNIA [None]
  - MENISCUS LESION [None]
  - MYOCARDIAL INFARCTION [None]
  - MYOCLONUS [None]
  - NEURODERMATITIS [None]
  - NEUROPATHY [None]
  - NON-CARDIAC CHEST PAIN [None]
  - OEDEMA [None]
  - OSTEOARTHRITIS [None]
  - PLANTAR FASCIITIS [None]
  - PRURITUS [None]
  - PYELONEPHRITIS ACUTE [None]
  - STRESS [None]
  - TENOSYNOVITIS STENOSANS [None]
